FAERS Safety Report 16656512 (Version 5)
Quarter: 2020Q2

REPORT INFORMATION
  Report Type: Report from Study
  Country: KR (occurrence: KR)
  Receive Date: 20190801
  Receipt Date: 20200507
  Transmission Date: 20200713
  Serious: Yes (Hospitalization)
  Sender: FDA-Public Use
  Company Number: KR-EISAI MEDICAL RESEARCH-EC-2019-059879

PATIENT
  Age: 65 Year
  Sex: Male
  Weight: 73.6 kg

DRUGS (21)
  1. LENVATINIB [Suspect]
     Active Substance: LENVATINIB
     Indication: THYROID CANCER
     Route: 048
     Dates: start: 20190328, end: 20190719
  2. DERMOVATE [Concomitant]
     Active Substance: CLOBETASOL
  3. TAMSNAL [Concomitant]
  4. LENVATINIB [Suspect]
     Active Substance: LENVATINIB
     Route: 048
     Dates: start: 20190816, end: 20190830
  5. LENVATINIB [Suspect]
     Active Substance: LENVATINIB
     Route: 048
     Dates: start: 20190919, end: 20200111
  6. ADALAT [Concomitant]
     Active Substance: NIFEDIPINE
  7. LENVATINIB [Suspect]
     Active Substance: LENVATINIB
     Route: 048
     Dates: start: 20200113, end: 20200205
  8. EBASTEL [Concomitant]
     Active Substance: EBASTINE
  9. OLMETEC [Concomitant]
     Active Substance: OLMESARTAN MEDOXOMIL
  10. BRONCHO-VAXOM [Concomitant]
  11. BRUFEN [Concomitant]
     Active Substance: IBUPROFEN
  12. DICETEL [Concomitant]
     Active Substance: PINAVERIUM BROMIDE
  13. LENVATINIB [Suspect]
     Active Substance: LENVATINIB
     Route: 048
     Dates: start: 20200207, end: 20200207
  14. BUSCOPAN [Concomitant]
     Active Substance: BUTYLSCOPOLAMINE BROMIDE
  15. DEXILANT [Concomitant]
     Active Substance: DEXLANSOPRAZOLE
  16. SYNTHYROXINE [Concomitant]
     Active Substance: LEVOTHYROXINE SODIUM
  17. LENVATINIB [Suspect]
     Active Substance: LENVATINIB
     Route: 048
     Dates: start: 20200209
  18. CONCOR [Concomitant]
     Active Substance: BISOPROLOL FUMARATE
  19. UREA. [Concomitant]
     Active Substance: UREA
  20. DICAMAX [Concomitant]
  21. CEREBREX [Concomitant]
     Active Substance: CALCIUM GLYCEROPHOSPHATE\CALCIUM PHOSPHATE\GLUTAMIC ACID\VITAMIN B

REACTIONS (1)
  - Pneumothorax [Recovered/Resolved]

NARRATIVE: CASE EVENT DATE: 20190729
